FAERS Safety Report 17903852 (Version 1)
Quarter: 2020Q2

REPORT INFORMATION
  Report Type: Report from Study
  Country: None (occurrence: AR)
  Receive Date: 20200617
  Receipt Date: 20200617
  Transmission Date: 20200714
  Serious: Yes (Other)
  Sender: FDA-Public Use
  Company Number: AR-ABBVIE-20K-007-3448407-00

PATIENT
  Age: 26 Year
  Sex: Female

DRUGS (1)
  1. HUMIRA [Suspect]
     Active Substance: ADALIMUMAB
     Indication: HIDRADENITIS
     Route: 058
     Dates: start: 20150804

REACTIONS (3)
  - Female genital tract fistula [Unknown]
  - Hidradenitis [Not Recovered/Not Resolved]
  - Vulvovaginal injury [Unknown]

NARRATIVE: CASE EVENT DATE: 202005
